FAERS Safety Report 8978669 (Version 4)
Quarter: 2013Q1

REPORT INFORMATION
  Report Type: Report from Study
  Country: DE (occurrence: DE)
  Receive Date: 20121220
  Receipt Date: 20130213
  Transmission Date: 20140127
  Serious: Yes (Death, Hospitalization, Other)
  Sender: FDA-Public Use
  Company Number: DE-OTSUKA-EU-2012-10072

PATIENT
  Sex: Male

DRUGS (38)
  1. SAMSCA [Suspect]
     Indication: INAPPROPRIATE ANTIDIURETIC HORMONE SECRETION
     Dosage: 7.5 MG MILLIGRAM(S), DAILY DOSE
     Route: 048
     Dates: start: 20110901, end: 20110902
  2. SAMSCA [Suspect]
     Dosage: 7.5 MG MILLIGRAM(S), DAILY DOSE
     Route: 048
     Dates: start: 20110903, end: 20120103
  3. SAMSCA [Suspect]
     Dosage: 7.5 MG MILLIGRAM(S), UNKNOWN
     Route: 048
     Dates: start: 20120104, end: 20120622
  4. SALINE [Concomitant]
     Dosage: UNK, UNKNOWN
     Route: 065
     Dates: start: 20110829, end: 20110901
  5. BICALUTAMID [Concomitant]
     Indication: PROSTATE CANCER
     Dosage: 50 MG MILLIGRAM(S), DAILY DOSE
     Route: 048
     Dates: start: 20110907, end: 20110927
  6. LEUPRORELIN [Concomitant]
     Indication: PROSTATE CANCER
     Dosage: 11.25 MG MILLIGRAM(S), DAILY DOSE
     Route: 058
     Dates: start: 20110907
  7. PANTOPRAZOLE [Concomitant]
     Indication: PROPHYLAXIS AGAINST GASTROINTESTINAL ULCER
     Dosage: 40 MG MILLIGRAM(S), DAILY DOSE
     Route: 048
     Dates: start: 20110831
  8. PANTOPRAZOLE [Concomitant]
     Dosage: 80 MG MILLIGRAM(S), DAILY DOSE
     Route: 048
     Dates: start: 20110831, end: 20110901
  9. PANTOPRAZOLE [Concomitant]
     Dosage: 40 MG MILLIGRAM(S), QW
     Route: 048
     Dates: start: 20110905
  10. METOPROLOL SUCCINATE [Concomitant]
     Indication: HYPERTENSION
     Dosage: 47.5 MG MILLIGRAM(S), DAILY DOSE
     Route: 048
  11. PHENPROCOUMON [Concomitant]
     Indication: ATRIAL FIBRILLATION
     Dosage: UNK UNK, UNKNOWN
     Route: 048
     Dates: end: 201109
  12. SERTRALIN [Concomitant]
     Indication: DEPRESSION
     Dosage: 50 MG MILLIGRAM(S), DAILY DOSE
     Route: 048
  13. SERTRALIN [Concomitant]
     Dosage: 50 MG MILLIGRAM(S), DAILY DOSE
     Route: 048
     Dates: start: 20110901
  14. ALENDRONIC ACID [Concomitant]
     Indication: PROSTATE CANCER
     Dosage: 70 MG MILLIGRAM(S), DAILY DOSE
     Route: 048
     Dates: start: 20110907
  15. SIMETICON [Concomitant]
     Indication: FLATULENCE
     Dosage: 20 ML MILLILITRE(S), DAILY DOSE
     Route: 048
     Dates: start: 20110829
  16. MACROGOL [Concomitant]
     Indication: CONSTIPATION
     Dosage: 1 DF DOSAGE FORM, DAILY DOSE
     Route: 048
  17. FENTANYL [Concomitant]
     Indication: TUMOUR PAIN
     Dosage: 25 MCG, Q1HR
     Route: 003
  18. METAMIZOLE [Concomitant]
     Indication: TUMOUR PAIN
     Dosage: 30 GTT DROP(S), DAILY DOSE
     Route: 048
  19. ZOPICLONE [Concomitant]
     Indication: INSOMNIA
     Dosage: UNK UNK, UNKNOWN
     Route: 048
     Dates: start: 20110831
  20. TORASEMID [Concomitant]
     Indication: PROPHYLAXIS
     Dosage: 10 MG MILLIGRAM(S), DAILY DOSE
     Route: 048
     Dates: start: 20110908
  21. KONAKION [Concomitant]
     Indication: INTERNATIONAL NORMALISED RATIO INCREASED
     Dosage: 1 DF DOSAGE FORM, DAILY DOSE
     Route: 042
     Dates: start: 20110901, end: 20110901
  22. KONAKION [Concomitant]
     Indication: OVERDOSE
     Dosage: 12 GTT DROP(S), DAILY DOSE
     Route: 048
     Dates: start: 20110829, end: 20110829
  23. FRAGMIN P [Concomitant]
     Indication: THROMBOSIS PROPHYLAXIS
     Dosage: 2 DF DOSAGE FORM, DAILY DOSE
     Route: 058
     Dates: start: 20110902, end: 20110906
  24. GASTROGRAFIN [Concomitant]
     Indication: SUBILEUS
     Dosage: 40 ML MILLILITRE(S), DAILY DOSE
     Route: 048
     Dates: start: 20110829, end: 20110829
  25. RAMIPRIL [Concomitant]
     Indication: HYPERTENSION
     Dosage: 5 MG MILLIGRAM(S), DAILY DOSE
     Route: 048
     Dates: end: 20110829
  26. GLIMEPRID [Concomitant]
     Indication: DIABETES MELLITUS
     Dosage: 0.5 MG MILLIGRAM(S), DAILY DOSE
     Route: 048
     Dates: end: 20110828
  27. MOLSIHEXAL [Concomitant]
     Indication: CORONARY ARTERY DISEASE
     Dosage: 8 MG MILLIGRAM(S), DAILY DOSE
     Route: 048
     Dates: end: 20110828
  28. DOMINAL [Concomitant]
     Indication: DEPRESSION
     Dosage: 80 MG MILLIGRAM(S), DAILY DOSE
     Route: 048
     Dates: end: 20110828
  29. DOMINAL [Concomitant]
     Indication: INSOMNIA
  30. BALDRIANWURZEL [Concomitant]
     Indication: INSOMNIA
     Dosage: 1 DF DOSAGE FORM, DAILY DOSE
     Route: 048
     Dates: start: 20110828, end: 20110829
  31. TAVOR [Concomitant]
     Indication: DEPRESSION
     Dosage: 1 MG MILLIGRAM(S), DAILY DOSE
     Route: 048
     Dates: start: 20110831, end: 20110831
  32. TAVOR [Concomitant]
     Dosage: 1.5 MG MILLIGRAM(S), DAILY DOSE
     Route: 048
     Dates: start: 20110901, end: 20110903
  33. TAVOR [Concomitant]
     Dosage: 0.5 MG MILLIGRAM(S), DAILY DOSE
     Route: 048
     Dates: start: 20110904, end: 20110904
  34. TAMSULOSIN [Concomitant]
     Indication: PROSTATE CANCER
     Dosage: 0.4 MG MILLIGRAM(S), DAILY DOSE
     Route: 048
     Dates: start: 201109
  35. ARCOXIA [Concomitant]
     Indication: PAIN IN EXTREMITY
     Dosage: 60 MG MILLIGRAM(S), DAILY DOSE
     Route: 048
     Dates: start: 201206
  36. ARCOXIA [Concomitant]
     Indication: TRAUMATIC FRACTURE
  37. CLEXANE [Concomitant]
     Indication: THROMBOSIS PROPHYLAXIS
     Dosage: 1.0 ML MILLILITRE(S), DAILY DOSE
     Route: 058
     Dates: start: 20120531
  38. METOPROLOL [Concomitant]
     Indication: HYPERTENSION
     Dosage: 180 MG MILLIGRAM(S), DAILY DOSE
     Route: 048
     Dates: start: 20111024

REACTIONS (11)
  - Death [Fatal]
  - Foot fracture [Recovered/Resolved with Sequelae]
  - Anaemia [Not Recovered/Not Resolved]
  - Disorientation [Recovered/Resolved]
  - Frequent bowel movements [Recovered/Resolved]
  - Muscular weakness [Unknown]
  - Pollakiuria [Recovering/Resolving]
  - Orthostatic hypotension [Recovered/Resolved]
  - Thirst [Recovering/Resolving]
  - Wrong technique in drug usage process [Unknown]
  - Incorrect drug administration rate [Unknown]
